FAERS Safety Report 18446374 (Version 4)
Quarter: 2020Q4

REPORT INFORMATION
  Report Type: Spontaneous
  Country: DE (occurrence: DE)
  Receive Date: 20201030
  Receipt Date: 20201223
  Transmission Date: 20210114
  Serious: Yes (Hospitalization)
  Sender: FDA-Public Use
  Company Number: DE-PFIZER INC-2020333341

PATIENT
  Sex: Female

DRUGS (7)
  1. PALLADON [Interacting]
     Active Substance: HYDROMORPHONE
     Dosage: 8 MG, 3X/DAY
  2. PALLADON [Interacting]
     Active Substance: HYDROMORPHONE
     Dosage: 16 MG, 2X/DAY
  3. PALLADON [Interacting]
     Active Substance: HYDROMORPHONE
     Indication: BACK PAIN
     Dosage: 2 MG, UNK
     Route: 065
  4. GABAPENTIN. [Suspect]
     Active Substance: GABAPENTIN
     Dosage: UNK
     Route: 065
  5. PALLADON [Interacting]
     Active Substance: HYDROMORPHONE
     Dosage: UNK
     Dates: start: 202010, end: 202011
  6. PALLADON [Interacting]
     Active Substance: HYDROMORPHONE
     Dosage: UNK, 2X/DAY
  7. NORTASE [Concomitant]
     Dosage: UNK
     Route: 065

REACTIONS (7)
  - Contraindicated product administered [Unknown]
  - Pancreatic enzyme abnormality [Not Recovered/Not Resolved]
  - Diarrhoea [Not Recovered/Not Resolved]
  - Drug interaction [Not Recovered/Not Resolved]
  - Withdrawal syndrome [Unknown]
  - Product dose omission issue [Unknown]
  - Feeling cold [Unknown]
